FAERS Safety Report 15291465 (Version 1)
Quarter: 2018Q3

REPORT INFORMATION
  Report Type: Spontaneous
  Country: DE (occurrence: DE)
  Receive Date: 20180817
  Receipt Date: 20180817
  Transmission Date: 20181010
  Serious: Yes (Congenital Anomaly, Other)
  Sender: FDA-Public Use
  Company Number: DE-BAUSCH-BL-2018-021516

PATIENT
  Age: 1 Day
  Sex: Female
  Weight: .99 kg

DRUGS (3)
  1. PREDNISOLON [Suspect]
     Active Substance: PREDNISOLONE
     Indication: PRODUCT USED FOR UNKNOWN INDICATION
     Dosage: 15 (MILLIGRAM PER DAY)
     Route: 064
     Dates: start: 20170212, end: 20170907
  2. L?THYROXIN [Concomitant]
     Active Substance: LEVOTHYROXINE SODIUM
     Indication: PRODUCT USED FOR UNKNOWN INDICATION
     Route: 064
  3. AZATHIOPRINE. [Suspect]
     Active Substance: AZATHIOPRINE
     Indication: PRODUCT USED FOR UNKNOWN INDICATION
     Dosage: 200 (MILLIGRAM PER DAY)
     Route: 064
     Dates: start: 20170212, end: 20170907

REACTIONS (5)
  - Patent ductus arteriosus [Recovered/Resolved]
  - Pericardial effusion [Recovered/Resolved]
  - Hydrops foetalis [Recovered/Resolved]
  - Atrial septal defect [Not Recovered/Not Resolved]
  - Pancytopenia [Recovered/Resolved]

NARRATIVE: CASE EVENT DATE: 20170907
